FAERS Safety Report 4540175-7 (Version None)
Quarter: 2004Q4

REPORT INFORMATION
  Report Type: 
  Country: None (occurrence: None)
  Receive Date: 20041222
  Receipt Date: 20041210
  Transmission Date: 20050328
  Serious: Yes (Disabling, Other)
  Sender: FDA-Public Use
  Company Number: US_0411108697

PATIENT
  Age: 71 Year
  Sex: Male

DRUGS (13)
  1. KEFLEX [Suspect]
     Indication: UPPER RESPIRATORY TRACT INFLAMMATION
     Dosage: 750 MG
     Dates: start: 20041103, end: 20041110
  2. IBUPROFEN [Concomitant]
  3. LOXOPROFEN SODIUM [Concomitant]
  4. L-GLUTAMINE [Concomitant]
  5. SIGMART (NICORANDIL) [Concomitant]
  6. PRAVASTATIN [Concomitant]
  7. TICPILONE (TICLOPIDINE HYDROCHLORIDE) [Concomitant]
  8. ASPIRIN [Concomitant]
  9. D ALFA (ALFACALCIDOL) [Concomitant]
  10. ASPARA-CA (ASPARTATE CALCIUM) [Concomitant]
  11. NIPOLAZIN (MEQUITAZINE) [Concomitant]
  12. FOSAMAC [Concomitant]
  13. IBUPROFEN [Concomitant]

REACTIONS (11)
  - ANURIA [None]
  - BLOOD BICARBONATE DECREASED [None]
  - BLOOD IMMUNOGLOBULIN A INCREASED [None]
  - BLOOD IMMUNOGLOBULIN G INCREASED [None]
  - GENERALISED OEDEMA [None]
  - HAEMODIALYSIS [None]
  - NASOPHARYNGITIS [None]
  - NEPHRITIS INTERSTITIAL [None]
  - PYREXIA [None]
  - RENAL FAILURE ACUTE [None]
  - URTICARIA [None]
